FAERS Safety Report 23175401 (Version 1)
Quarter: 2023Q4

REPORT INFORMATION
  Report Type: Spontaneous
  Country: FR (occurrence: FR)
  Receive Date: 20231113
  Receipt Date: 20231113
  Transmission Date: 20240109
  Serious: Yes (Death, Other)
  Sender: FDA-Public Use
  Company Number: FR-JNJFOC-20231072109

PATIENT
  Age: 52 Year
  Sex: Female

DRUGS (5)
  1. LENALIDOMIDE [Suspect]
     Active Substance: LENALIDOMIDE
     Indication: Plasma cell myeloma
     Dosage: 1ST LINE OF TREATMENT
     Route: 065
  2. DEXAMETHASONE [Suspect]
     Active Substance: DEXAMETHASONE
     Indication: Plasma cell myeloma
     Dosage: 40 MILLIGRAM, BIWEEKLY (40 MG/DOSE 2 DOSE(S)/WEEK 4 WEEK(S)/CYCLE; 1ST LINE OF TREATMENT)
     Route: 065
  3. DARATUMUMAB [Suspect]
     Active Substance: DARATUMUMAB
     Indication: Plasma cell myeloma
     Dosage: 1800 MILLIGRAM (1800 MG/DOSE 1 DOSE(S)/WEEK 4 WEEK(S)/CYCLE; 1ST LINE OF TREATMENT)
     Route: 065
  4. THALIDOMIDE [Suspect]
     Active Substance: THALIDOMIDE
     Indication: Plasma cell myeloma
     Dosage: 100 MILLIGRAM (100 MG/DOSE 7 DOSES /WEEK 4 WEEK(S)/CYCLE)
     Route: 065
  5. VELCADE [Suspect]
     Active Substance: BORTEZOMIB
     Indication: Plasma cell myeloma
     Dosage: 1.3 MILLIGRAM/SQ. METER, BIWEEKLY (1.3 MG/M2/DOSE 2 DOSES/WEEK 4 WEEK(S)/CYCLE; 1ST LINE OF TREATMEN
     Route: 065

REACTIONS (5)
  - Septic shock [Fatal]
  - Acute respiratory distress syndrome [Fatal]
  - COVID-19 [Unknown]
  - Intentional product use issue [Unknown]
  - Off label use [Unknown]
